FAERS Safety Report 10340541 (Version 1)
Quarter: 2014Q3

REPORT INFORMATION
  Report Type: Spontaneous
  Country: US (occurrence: None)
  Receive Date: 20140722
  Receipt Date: 20140722
  Transmission Date: 20150326
  Serious: Yes (Other)
  Sender: FDA-Public Use
  Company Number: SYM-2014-23107

PATIENT
  Age: 63 Year
  Sex: Male
  Weight: 55.38 kg

DRUGS (16)
  1. DULERA (DULERA) FORMOTEROL FUMARATE, MOMETASONE FUROATE [Concomitant]
  2. PANATASE (OLOPATADINE HYDROCHLORIDE) [Concomitant]
  3. ALLEGRA (FEXOFENADINE HYDROCHLORIDE) [Concomitant]
  4. PATADAY (OLOPATADINE HYDROCHLORIDE) [Concomitant]
  5. SINGULAIR [Suspect]
     Active Substance: MONTELUKAST SODIUM
     Indication: MULTIPLE ALLERGIES
     Dosage: AT NIGHT
     Route: 048
  6. VENTOLIN HFA [Suspect]
     Active Substance: ALBUTEROL SULFATE
     Indication: WHEEZING
     Dosage: 2 PUFFS
     Dates: start: 20120605
  7. TIAZAC [Suspect]
     Active Substance: DILTIAZEM HYDROCHLORIDE
     Indication: PRODUCT USED FOR UNKNOWN INDICATION
     Route: 048
  8. XYZAL [Suspect]
     Active Substance: LEVOCETIRIZINE DIHYDROCHLORIDE
     Indication: MULTIPLE ALLERGIES
     Dosage: AT NIGHT
     Route: 048
  9. VYTORIN (INEGY) (SIMVASTATIN, EZETIMIBE) [Concomitant]
  10. ASPIRIN (ACETYLSALICYLIC ACID) TABLET [Suspect]
     Active Substance: ASPIRIN
     Indication: PRODUCT USED FOR UNKNOWN INDICATION
     Route: 048
  11. NASONEX [Suspect]
     Active Substance: MOMETASONE FUROATE
     Indication: MULTIPLE ALLERGIES
     Dosage: 4 SPRAY
     Route: 045
  12. EPIPEN [Concomitant]
     Active Substance: EPINEPHRINE
  13. PALGIC (CARBINOXAMINE MALEATE) [Concomitant]
  14. PRILOSEC [Suspect]
     Active Substance: OMEPRAZOLE MAGNESIUM
     Indication: PRODUCT USED FOR UNKNOWN INDICATION
     Dosage: IN THE MORNING
     Route: 048
  15. ZANTAC [Suspect]
     Active Substance: RANITIDINE HYDROCHLORIDE
     Indication: DYSPEPSIA
     Dosage: AT NIGHT
     Route: 048
  16. XOLAIR [Concomitant]
     Active Substance: OMALIZUMAB

REACTIONS (10)
  - Skin cancer [None]
  - Conjunctivitis allergic [None]
  - Atrial fibrillation [None]
  - Gastrooesophageal reflux disease [None]
  - Hypertension [None]
  - Hypercholesterolaemia [None]
  - Drug dose omission [None]
  - Terminal insomnia [None]
  - Asthma [None]
  - Drug ineffective [None]
